FAERS Safety Report 6029824-4 (Version None)
Quarter: 2009Q1

REPORT INFORMATION
  Report Type: 
  Country: None (occurrence: None)
  Receive Date: 20090106
  Receipt Date: 20090106
  Transmission Date: 20090719
  Serious: No
  Sender: FDA-Public Use
  Company Number: None

PATIENT
  Age: 84 Year
  Sex: Male
  Weight: 87.9978 kg

DRUGS (1)
  1. AVODART [Suspect]
     Dates: start: 20080609

REACTIONS (2)
  - BREAST SWELLING [None]
  - BREAST TENDERNESS [None]
